FAERS Safety Report 4720229-2 (Version None)
Quarter: 2005Q3

REPORT INFORMATION
  Report Type: 
  Country: None (occurrence: None)
  Receive Date: 20050719
  Receipt Date: 20050721
  Transmission Date: 20060218
  Serious: Yes (Hospitalization, Other)
  Sender: FDA-Public Use
  Company Number: DEWYE826212JUL05

PATIENT
  Age: 44 Year
  Sex: Female

DRUGS (4)
  1. RAPAMUNE [Suspect]
     Indication: PROPHYLAXIS AGAINST TRANSPLANT REJECTION
     Dosage: 12 MG ORAL
     Route: 048
     Dates: start: 20050330, end: 20050415
  2. MYCOPHENOLATE MOFETIL (MYCOPHENOLATE MOFETIL, , 0) [Suspect]
     Indication: PROPHYLAXIS AGAINST TRANSPLANT REJECTION
     Dosage: 200 MG
  3. PREDNISOLONE [Suspect]
     Indication: PROPHYLAXIS AGAINST TRANSPLANT REJECTION
     Dosage: 20 MG
  4. ZENAPAX [Concomitant]

REACTIONS (4)
  - BLOOD CREATINE INCREASED [None]
  - HAEMODIALYSIS [None]
  - IMPAIRED HEALING [None]
  - RENAL TUBULAR DISORDER [None]
